FAERS Safety Report 18388997 (Version 5)
Quarter: 2020Q4

REPORT INFORMATION
  Report Type: Report from Study
  Country: US (occurrence: US)
  Receive Date: 20201015
  Receipt Date: 20201113
  Transmission Date: 20210114
  Serious: Yes (Hospitalization)
  Sender: FDA-Public Use
  Company Number: US-PFIZER INC-2020390566

PATIENT
  Age: 2 Year
  Sex: Female
  Weight: 12 kg

DRUGS (2)
  1. BINIMETINIB [Suspect]
     Active Substance: BINIMETINIB
     Indication: NEUROFIBROMATOSIS
     Dosage: 12 MG, 2X/DAY (SUSPENSION, 1 MG/ML)
     Route: 048
     Dates: start: 20200917, end: 20201001
  2. VIGABATRIN. [Concomitant]
     Active Substance: VIGABATRIN
     Indication: SEIZURE
     Dosage: 5.0 ML, 2X/DAY
     Route: 048
     Dates: start: 201905

REACTIONS (8)
  - Oedema peripheral [Recovering/Resolving]
  - Pain [Recovering/Resolving]
  - Dyskinesia [Recovering/Resolving]
  - Localised oedema [Recovering/Resolving]
  - Pain [Recovering/Resolving]
  - Rash [Recovered/Resolved]
  - Tumour pain [Recovered/Resolved]
  - Face oedema [Recovered/Resolved]

NARRATIVE: CASE EVENT DATE: 20201001
